FAERS Safety Report 18787121 (Version 1)
Quarter: 2021Q1

REPORT INFORMATION
  Report Type: Spontaneous
  Country: US (occurrence: US)
  Receive Date: 20210126
  Receipt Date: 20210126
  Transmission Date: 20210419
  Serious: Yes (Hospitalization)
  Sender: FDA-Public Use
  Company Number: None

PATIENT
  Age: 75 Year
  Sex: Female

DRUGS (2)
  1. DARATUMUMAB AND HYALURONIDASE [Suspect]
     Active Substance: DARATUMUMAB\HYALURONIDASE-FIHJ
     Indication: PRODUCT USED FOR UNKNOWN INDICATION
     Dosage: ?          OTHER FREQUENCY:UNK;?
     Dates: start: 20210125
  2. DARATUMUMAB AND HYALURONIDASE [Concomitant]
     Active Substance: DARATUMUMAB\HYALURONIDASE-FIHJ
     Dates: start: 20210125

REACTIONS (4)
  - Heart rate increased [None]
  - Anxiety [None]
  - Dyspnoea [None]
  - Blood pressure increased [None]

NARRATIVE: CASE EVENT DATE: 20210125
